FAERS Safety Report 8617923-X (Version None)
Quarter: 2012Q3

REPORT INFORMATION
  Report Type: 
  Country: None (occurrence: None)
  Receive Date: 20120824
  Receipt Date: 20120403
  Transmission Date: 20120928
  Serious: No
  Sender: FDA-Public Use
  Company Number: US-ASTRAZENECA-2012SE15112

PATIENT
  Sex: Female

DRUGS (1)
  1. SYMBICORT [Suspect]
     Indication: BRONCHITIS
     Dosage: 160/4.5 MCG 2 PUFFS TWICE DAILY
     Route: 055

REACTIONS (4)
  - DRUG DOSE OMISSION [None]
  - VISUAL ACUITY REDUCED [None]
  - DYSPNOEA [None]
  - HEARING IMPAIRED [None]
